FAERS Safety Report 9393249 (Version 1)
Quarter: 2013Q3

REPORT INFORMATION
  Report Type: Spontaneous
  Country: CN (occurrence: CN)
  Receive Date: 20130710
  Receipt Date: 20130710
  Transmission Date: 20140515
  Serious: Yes (Death)
  Sender: FDA-Public Use
  Company Number: CN-PFIZER INC-2013201204

PATIENT
  Age: 56 Year
  Sex: Female

DRUGS (11)
  1. MORPHINE SULFATE [Suspect]
     Indication: PAIN
     Dosage: 80 MG, 2X/DAY
     Route: 048
     Dates: start: 20130319, end: 20130319
  2. MORPHINE SULFATE [Suspect]
     Dosage: 100 MG, 2X/DAY
     Route: 048
     Dates: start: 20130320, end: 20130411
  3. MORPHINE SULFATE [Suspect]
     Dosage: 150 MG, 2X/DAY
     Route: 048
     Dates: start: 20130411, end: 20130420
  4. MORPHINE SULFATE [Suspect]
     Dosage: 300 MG, 3X/DAY
     Route: 054
     Dates: start: 20130503, end: 20130503
  5. OXYCODONE HYDROCHLORIDE [Suspect]
     Indication: PAIN
     Dosage: 90 MG, 2X/DAY
     Route: 054
     Dates: start: 20130420, end: 20130423
  6. OXYCODONE HYDROCHLORIDE [Suspect]
     Dosage: 120 MG, 2X/DAY
     Route: 054
     Dates: start: 20130423, end: 20130425
  7. OXYCODONE HYDROCHLORIDE [Suspect]
     Dosage: 150 MG, 3X/DAY
     Route: 054
     Dates: start: 20130425, end: 20130503
  8. CELECOXIB [Concomitant]
     Dosage: UNK
     Dates: start: 20130411
  9. CARBAMAZEPINE [Concomitant]
     Dosage: UNK
     Dates: start: 20130411
  10. MORPHINE HYDROCHLORIDE [Concomitant]
     Indication: ANALGESIC THERAPY
  11. FENTANYL [Concomitant]
     Indication: ANALGESIC THERAPY
     Route: 062

REACTIONS (7)
  - Lung neoplasm malignant [Fatal]
  - Disease progression [Fatal]
  - Drug ineffective [Unknown]
  - Off label use [Unknown]
  - Vomiting [Unknown]
  - Nausea [Unknown]
  - Pain [Unknown]
